FAERS Safety Report 8523268-9 (Version None)
Quarter: 2012Q3

REPORT INFORMATION
  Report Type: 
  Country: None (occurrence: None)
  Receive Date: 20120720
  Receipt Date: 20120709
  Transmission Date: 20120928
  Serious: No
  Sender: FDA-Public Use
  Company Number: US-JNJFOC-20120704299

PATIENT
  Sex: Male

DRUGS (1)
  1. DURAGESIC-100 [Suspect]
     Indication: PRODUCT USED FOR UNKNOWN INDICATION
     Dosage: PRODUCT COMPLAINT NUMBER  10000192864
     Route: 062

REACTIONS (2)
  - INCORRECT DOSE ADMINISTERED [None]
  - PRODUCT QUALITY ISSUE [None]
